FAERS Safety Report 4589768-1 (Version None)
Quarter: 2005Q1

REPORT INFORMATION
  Report Type: 
  Country: None (occurrence: None)
  Receive Date: 20050223
  Receipt Date: 20050214
  Transmission Date: 20050727
  Serious: Yes (Congenital Anomaly, Other)
  Sender: FDA-Public Use
  Company Number: GB-BRISTOL-MYERS SQUIBB COMPANY-12864823

PATIENT

DRUGS (4)
  1. METFORMIN HCL [Suspect]
     Route: 064
     Dates: end: 20041102
  2. ATORVASTATIN CALCIUM [Suspect]
     Route: 064
     Dates: end: 20041102
  3. GLICLAZIDE [Suspect]
     Route: 064
     Dates: end: 20041102
  4. INSULIN [Concomitant]
     Route: 064

REACTIONS (4)
  - CONGENITAL HEPATOMEGALY [None]
  - PREGNANCY [None]
  - SINGLE FUNCTIONAL KIDNEY [None]
  - STILLBIRTH [None]
